FAERS Safety Report 7812854-7 (Version None)
Quarter: 2011Q4

REPORT INFORMATION
  Report Type: 
  Country: None (occurrence: None)
  Receive Date: 20111013
  Receipt Date: 20111006
  Transmission Date: 20120403
  Serious: Yes (Other)
  Sender: FDA-Public Use
  Company Number: US-ABBOTT-11P-163-0862044-00

PATIENT
  Age: 39 Year
  Sex: Male

DRUGS (1)
  1. HUMIRA [Suspect]
     Indication: CROHN'S DISEASE
     Dates: start: 20110101, end: 20111001

REACTIONS (8)
  - DEMYELINATION [None]
  - CENTRAL NERVOUS SYSTEM LESION [None]
  - GASTROINTESTINAL INFECTION [None]
  - PYREXIA [None]
  - VIITH NERVE PARALYSIS [None]
  - COLITIS [None]
  - CHILLS [None]
  - MALAISE [None]
